FAERS Safety Report 19681998 (Version 8)
Quarter: 2022Q2

REPORT INFORMATION
  Report Type: Report from Study
  Country: CL (occurrence: CL)
  Receive Date: 20210810
  Receipt Date: 20220617
  Transmission Date: 20220721
  Serious: Yes (Hospitalization, Other)
  Sender: FDA-Public Use
  Company Number: CL-TAKEDA-2021TUS041348

PATIENT
  Age: 4 Year
  Sex: Male

DRUGS (5)
  1. IDURSULFASE [Suspect]
     Active Substance: IDURSULFASE
     Indication: Mucopolysaccharidosis II
     Dosage: 0.5 MILLIGRAM/KILOGRAM, 1/WEEK
     Route: 042
  2. IDURSULFASE [Suspect]
     Active Substance: IDURSULFASE
     Indication: Oestrogen replacement therapy
     Dosage: 0.5 MILLIGRAM/KILOGRAM, 1/WEEK
     Route: 042
  3. IDURSULFASE [Suspect]
     Active Substance: IDURSULFASE
     Dosage: 0.5 MILLIGRAM/KILOGRAM, 1/WEEK
     Route: 042
  4. IDURSULFASE [Suspect]
     Active Substance: IDURSULFASE
     Dosage: 0.5 MILLIGRAM/KILOGRAM, 1/WEEK
     Route: 042
  5. IDURSULFASE [Suspect]
     Active Substance: IDURSULFASE
     Dosage: 0.5 MILLIGRAM/KILOGRAM, 1/WEEK
     Route: 042

REACTIONS (22)
  - Adverse event [Recovered/Resolved]
  - Device occlusion [Recovered/Resolved]
  - Croup infectious [Recovering/Resolving]
  - Hypoventilation [Recovering/Resolving]
  - Umbilical hernia [Recovering/Resolving]
  - Tonsillar hypertrophy [Recovering/Resolving]
  - Device dislocation [Recovering/Resolving]
  - Bronchitis [Recovering/Resolving]
  - Rhinitis [Recovering/Resolving]
  - General physical condition abnormal [Recovering/Resolving]
  - Kidney enlargement [Recovering/Resolving]
  - Hypertension [Recovering/Resolving]
  - Tachycardia [Recovering/Resolving]
  - Pyrexia [Recovering/Resolving]
  - Ear infection [Recovering/Resolving]
  - Ear haemorrhage [Recovering/Resolving]
  - Tympanic membrane perforation [Recovering/Resolving]
  - Irritability [Recovering/Resolving]
  - Restlessness [Unknown]
  - Injury [Unknown]
  - Therapy interrupted [Unknown]
  - Lower limb fracture [Unknown]

NARRATIVE: CASE EVENT DATE: 20210624
